FAERS Safety Report 16292646 (Version 2)
Quarter: 2019Q2

REPORT INFORMATION
  Report Type: Report from Study
  Country: US (occurrence: US)
  Receive Date: 20190509
  Receipt Date: 20190523
  Transmission Date: 20190711
  Serious: Yes (Hospitalization)
  Sender: FDA-Public Use
  Company Number: US-ACTELION-A-NJ2016-136788

PATIENT
  Age: 85 Year
  Sex: Female

DRUGS (13)
  1. NORPRAMIN [Concomitant]
     Active Substance: DESIPRAMINE HYDROCHLORIDE
  2. COREG [Concomitant]
     Active Substance: CARVEDILOL
  3. SINGULAIR [Concomitant]
     Active Substance: MONTELUKAST SODIUM
  4. FLEXERIL [Concomitant]
     Active Substance: CYCLOBENZAPRINE HYDROCHLORIDE
  5. RESTASIS [Concomitant]
     Active Substance: CYCLOSPORINE
  6. HYDRALAZINE [Concomitant]
     Active Substance: HYDRALAZINE HYDROCHLORIDE
  7. DIOVAN [Concomitant]
     Active Substance: VALSARTAN
  8. HYDROCODONE BITARTRATE AND ACETAMINOPHEN [Concomitant]
     Active Substance: ACETAMINOPHEN\HYDROCODONE BITARTRATE
  9. SONATA [Concomitant]
     Active Substance: ZALEPLON
  10. XANAX [Concomitant]
     Active Substance: ALPRAZOLAM
  11. XIFAXAN [Concomitant]
     Active Substance: RIFAXIMIN
  12. OPSUMIT [Suspect]
     Active Substance: MACITENTAN
     Indication: PULMONARY ARTERIAL HYPERTENSION
     Dosage: 10 MG, QD
     Route: 048
     Dates: start: 20160304
  13. BUTRANS [Concomitant]
     Active Substance: BUPRENORPHINE

REACTIONS (9)
  - Disturbance in attention [Unknown]
  - Skin warm [Not Recovered/Not Resolved]
  - Peripheral swelling [Not Recovered/Not Resolved]
  - Cellulitis [Not Recovered/Not Resolved]
  - Erythema [Not Recovered/Not Resolved]
  - Renal disorder [Recovering/Resolving]
  - Anaemia [Recovering/Resolving]
  - Fatigue [Recovering/Resolving]
  - Full blood count decreased [Recovering/Resolving]

NARRATIVE: CASE EVENT DATE: 20160513
